FAERS Safety Report 19972976 (Version 2)
Quarter: 2021Q4

REPORT INFORMATION
  Report Type: Report from Study
  Country: US (occurrence: US)
  Receive Date: 20211020
  Receipt Date: 20211028
  Transmission Date: 20220303
  Serious: Yes (Death, Hospitalization)
  Sender: FDA-Public Use
  Company Number: NVSC2021US238205

PATIENT
  Age: 68 Year
  Sex: Female
  Weight: 64.7 kg

DRUGS (13)
  1. TNO-155 MONOSUCCINATE HEMIHYDRATE [Suspect]
     Active Substance: TNO-155 MONOSUCCINATE HEMIHYDRATE
     Indication: Colorectal cancer
     Dosage: UNK
     Route: 048
     Dates: start: 20210722
  2. DABRAFENIB [Suspect]
     Active Substance: DABRAFENIB
     Indication: Colorectal cancer
     Dosage: UNK
     Route: 048
     Dates: start: 20210722
  3. MEKINIST [Suspect]
     Active Substance: TRAMETINIB DIMETHYL SULFOXIDE
     Indication: Colorectal cancer
     Dosage: UNK
     Route: 048
     Dates: start: 20210722
  4. SPARTALIZUMAB [Suspect]
     Active Substance: SPARTALIZUMAB
     Indication: Colorectal cancer
     Dosage: UNK
     Route: 042
     Dates: start: 20210722
  5. METAMUCIL [Concomitant]
     Active Substance: PLANTAGO SEED
     Indication: General physical condition
     Dosage: UNK
     Route: 065
     Dates: start: 20201224
  6. SODIUM CHLORIDE [Concomitant]
     Active Substance: SODIUM CHLORIDE
     Indication: Hyponatraemia
     Dosage: UNK
     Route: 065
     Dates: start: 20210807
  7. LOMOTIL [Concomitant]
     Active Substance: ATROPINE SULFATE\DIPHENOXYLATE HYDROCHLORIDE
     Indication: General physical condition
     Dosage: 0.025 MG - 2.5 MG
     Route: 065
     Dates: start: 20210722
  8. DYMISTA [Concomitant]
     Active Substance: AZELASTINE HYDROCHLORIDE\FLUTICASONE PROPIONATE
     Indication: General physical condition
     Dosage: 137-50 MCG/SPRAY
     Route: 065
     Dates: start: 20210224
  9. EMLA [Concomitant]
     Active Substance: LIDOCAINE\PRILOCAINE
     Indication: General physical condition
     Dosage: UNK
     Route: 065
     Dates: start: 20190327
  10. PRINIVIL [Concomitant]
     Active Substance: LISINOPRIL
     Indication: General physical condition
     Dosage: UNK
     Route: 065
     Dates: start: 20191012
  11. IMODIUM A-D [Concomitant]
     Active Substance: LOPERAMIDE HYDROCHLORIDE
     Indication: General physical condition
     Dosage: UNK
     Route: 065
     Dates: start: 20210722
  12. NYSTOP [Concomitant]
     Active Substance: NYSTATIN
     Indication: General physical condition
     Dosage: UNK
     Route: 065
     Dates: start: 20210503
  13. COMPAZINE [Concomitant]
     Active Substance: PROCHLORPERAZINE MALEATE
     Indication: General physical condition
     Dosage: UNK
     Route: 065
     Dates: start: 20210722

REACTIONS (1)
  - Death [Fatal]

NARRATIVE: CASE EVENT DATE: 20211013
